FAERS Safety Report 17653115 (Version 1)
Quarter: 2020Q2

REPORT INFORMATION
  Report Type: Spontaneous
  Country: DE (occurrence: DE)
  Receive Date: 20200410
  Receipt Date: 20200410
  Transmission Date: 20200713
  Serious: Yes (Hospitalization)
  Sender: FDA-Public Use
  Company Number: DE-TEVA-2020-DE-1221583

PATIENT
  Age: 81 Year
  Sex: Female

DRUGS (9)
  1. LEVOTHYROXIN-NATRIUM [Concomitant]
     Active Substance: LEVOTHYROXINE SODIUM
     Dosage: 0.05 MG, 0.5-0-0-0, TABLET
     Route: 065
  2. SPIRONOLACTONE. [Suspect]
     Active Substance: SPIRONOLACTONE
     Dosage: 50 MG, 0.5-0-0-0, TABLETTEN
     Route: 065
  3. ALLOPURINOL. [Concomitant]
     Active Substance: ALLOPURINOL
     Dosage: 100 MG, 0-0-1-0, TABLET
     Route: 065
  4. LISINOPRIL. [Suspect]
     Active Substance: LISINOPRIL
     Dosage: 20 MG, 1-0-1-0, TABLETTEN
     Route: 065
  5. METOPROLOL. [Concomitant]
     Active Substance: METOPROLOL
     Dosage: 95 MG, 1-0-1-0, DELAY-TABLETTEN
     Route: 065
  6. URAPIDIL [Suspect]
     Active Substance: URAPIDIL
     Dosage: 30 MG, 1-0-1-0, RETARD CAPSULES
     Route: 065
  7. NITRENDIPIN [Suspect]
     Active Substance: NITRENDIPINE
     Dosage: 20 MG, 1-0-1-0, TABLETTEN
     Route: 065
  8. APIXABAN [Concomitant]
     Active Substance: APIXABAN
     Dosage: 5 MG, 1-0-1-0, TABLET
     Route: 065
  9. TORASEMIDE [Suspect]
     Active Substance: TORSEMIDE
     Dosage: 10 MG, 0.5-0-0-0, TABLET
     Route: 065

REACTIONS (4)
  - Fatigue [Unknown]
  - Palpitations [Unknown]
  - General physical health deterioration [Unknown]
  - Pyrexia [Unknown]
